FAERS Safety Report 4992597-8 (Version None)
Quarter: 2006Q1

REPORT INFORMATION
  Report Type: 
  Country: None (occurrence: None)
  Receive Date: 20060313
  Receipt Date: 20051110
  Transmission Date: 20060701
  Serious: No
  Sender: FDA-Public Use
  Company Number: 2005-BP-14809BP

PATIENT
  Age: 81 Year
  Sex: Female

DRUGS (8)
  1. SPIRIVA [Suspect]
     Indication: CHRONIC OBSTRUCTIVE PULMONARY DISEASE
     Dosage: 18 MCG(18 MCG,1 IN 1 D),IH
     Dates: start: 20040901
  2. SPIRIVA [Suspect]
  3. OXYGEN (OXYGEN) [Concomitant]
  4. DIGOXIN [Concomitant]
  5. FUROSEMIDE [Concomitant]
  6. KLOR-CON [Concomitant]
  7. ALBUTEROL [Concomitant]
  8. PULMICORT [Concomitant]

REACTIONS (1)
  - DYSPNOEA [None]
